FAERS Safety Report 25190429 (Version 2)
Quarter: 2025Q2

REPORT INFORMATION
  Report Type: Report from Study
  Country: US (occurrence: US)
  Receive Date: 20250411
  Receipt Date: 20250527
  Transmission Date: 20250717
  Serious: No
  Sender: BIOVITRUM
  Company Number: US-BIOVITRUM-2025-US-005028

PATIENT
  Age: 59 Year
  Sex: Female

DRUGS (2)
  1. KINERET [Suspect]
     Active Substance: ANAKINRA
     Indication: Deafness neurosensory
     Route: 058
     Dates: start: 20250218, end: 20250218
  2. KINERET [Suspect]
     Active Substance: ANAKINRA
     Dates: start: 20250318

REACTIONS (8)
  - Pyrexia [Unknown]
  - Injection site mass [Recovering/Resolving]
  - Injection site pruritus [Not Recovered/Not Resolved]
  - Injection site discomfort [Unknown]
  - Injection site erythema [Not Recovered/Not Resolved]
  - Off label use [Recovered/Resolved]
  - Urticaria [Unknown]
  - Rash maculo-papular [Unknown]

NARRATIVE: CASE EVENT DATE: 20250218
